FAERS Safety Report 5721206-5 (Version None)
Quarter: 2008Q2

REPORT INFORMATION
  Report Type: 
  Country: None (occurrence: None)
  Receive Date: 20080429
  Receipt Date: 20080424
  Transmission Date: 20081010
  Serious: Yes (Disabling)
  Sender: FDA-Public Use
  Company Number: FR-AVENTIS-200811579FR

PATIENT
  Age: 51 Year
  Sex: Female

DRUGS (4)
  1. TAXOTERE [Suspect]
     Indication: BREAST CANCER
     Route: 042
     Dates: start: 20051001, end: 20060301
  2. RADIOTHERAPY [Concomitant]
     Indication: BREAST CANCER
  3. ANTHRACYCLINES [Concomitant]
     Indication: BREAST CANCER
  4. CURIETHERAPY [Concomitant]
     Indication: BREAST CANCER

REACTIONS (2)
  - ASTHMA [None]
  - DYSPNOEA [None]
